FAERS Safety Report 24624311 (Version 1)
Quarter: 2024Q4

REPORT INFORMATION
  Report Type: Spontaneous
  Country: FR (occurrence: FR)
  Receive Date: 20241115
  Receipt Date: 20241115
  Transmission Date: 20250114
  Serious: Yes (Other)
  Sender: MYLAN
  Company Number: None

PATIENT
  Age: 63 Year
  Sex: Female

DRUGS (4)
  1. SUCCINYLCHOLINE CHLORIDE [Suspect]
     Active Substance: SUCCINYLCHOLINE CHLORIDE
     Indication: Antibiotic therapy
     Dosage: 1 DOSAGE FORM, QD
     Route: 023
     Dates: start: 20240708
  2. ROCURONIUM [Suspect]
     Active Substance: ROCURONIUM BROMIDE
     Indication: Antibiotic therapy
     Dosage: 1 DOSAGE FORM, QD
     Route: 023
     Dates: start: 20240708
  3. CISATRACURIUM [Suspect]
     Active Substance: CISATRACURIUM
     Indication: Antibiotic therapy
     Dosage: 1 DOSAGE FORM, QD
     Route: 023
     Dates: start: 20240708
  4. ATRACURIUM [Suspect]
     Active Substance: ATRACURIUM
     Indication: Antibiotic therapy
     Dosage: 1 DOSAGE FORM, QD
     Route: 023
     Dates: start: 20240708

REACTIONS (1)
  - Skin test positive [Recovered/Resolved]

NARRATIVE: CASE EVENT DATE: 20240708
